FAERS Safety Report 4556068-5 (Version None)
Quarter: 2005Q1

REPORT INFORMATION
  Report Type: 
  Country: None (occurrence: None)
  Receive Date: 20050119
  Receipt Date: 20050113
  Transmission Date: 20050727
  Serious: Yes (Other)
  Sender: FDA-Public Use
  Company Number: DE-GLAXOSMITHKLINE-D0045631A

PATIENT
  Age: 45 Year
  Sex: Female

DRUGS (4)
  1. VIANI [Suspect]
     Route: 055
  2. TAXOL [Concomitant]
     Indication: BREAST CANCER
     Route: 065
     Dates: end: 20040101
  3. DOXEPIN HCL [Concomitant]
     Route: 065
  4. ATACAND [Concomitant]
     Route: 048

REACTIONS (1)
  - ALANINE AMINOTRANSFERASE INCREASED [None]
